FAERS Safety Report 8515244-7 (Version None)
Quarter: 2012Q3

REPORT INFORMATION
  Report Type: 
  Country: None (occurrence: None)
  Receive Date: 20120717
  Receipt Date: 20120703
  Transmission Date: 20120928
  Serious: Yes (Hospitalization, Disabling, Other)
  Sender: FDA-Public Use
  Company Number: GB-WATSON-2012-12000

PATIENT
  Age: 76 Year
  Sex: Male
  Weight: 93 kg

DRUGS (11)
  1. RAMIPRIL [Suspect]
     Indication: HYPERTENSION
     Dosage: 10 MG, UNKNOWN INTERVAL
     Route: 048
     Dates: start: 20110901, end: 20120323
  2. CLOPIDOGREL [Concomitant]
     Indication: CARDIAC FAILURE
     Dosage: 75 MG, DAILY
     Route: 048
     Dates: start: 20020101
  3. DOXAZOSIN MESYLATE [Concomitant]
     Indication: PRODUCT USED FOR UNKNOWN INDICATION
     Dosage: 2 MG, DAILY
     Route: 048
  4. CIRCADIN [Concomitant]
     Indication: PRODUCT USED FOR UNKNOWN INDICATION
     Dosage: UNK
     Route: 048
  5. CO-DYDRAMOL [Concomitant]
     Indication: PRODUCT USED FOR UNKNOWN INDICATION
     Dosage: UNK
     Route: 048
  6. SODIUM BICARBONATE [Concomitant]
     Indication: PRODUCT USED FOR UNKNOWN INDICATION
     Dosage: UNK
     Route: 048
  7. TRAMADOL HCL [Concomitant]
     Indication: PRODUCT USED FOR UNKNOWN INDICATION
     Dosage: UNK
     Route: 048
  8. ASACOL [Concomitant]
     Indication: HYPERTENSION
     Dosage: 800 MG, TID
     Route: 048
     Dates: start: 20020101
  9. AMLODIPINE [Concomitant]
     Indication: COLITIS MICROSCOPIC
     Dosage: 5 MG, DAILY
     Route: 048
     Dates: start: 20020101
  10. SIMVASTATIN [Concomitant]
     Indication: PRODUCT USED FOR UNKNOWN INDICATION
     Dosage: 40 MG, DAILY
     Route: 048
     Dates: start: 20020101
  11. ATENOLOL [Concomitant]
     Indication: PRODUCT USED FOR UNKNOWN INDICATION
     Dosage: 50 MG, DAILY
     Route: 048
     Dates: start: 20020101

REACTIONS (6)
  - DYSSTASIA [None]
  - MALAISE [None]
  - SYNCOPE [None]
  - ABASIA [None]
  - ORTHOSTATIC HYPOTENSION [None]
  - ASTHENIA [None]
